FAERS Safety Report 5398558-1 (Version None)
Quarter: 2007Q3

REPORT INFORMATION
  Report Type: 
  Country: None (occurrence: None)
  Receive Date: 20070726
  Receipt Date: 20070314
  Transmission Date: 20080115
  Serious: No
  Sender: FDA-Public Use
  Company Number: US-AMGEN-KDL184295

PATIENT
  Sex: Male
  Weight: 59.4 kg

DRUGS (3)
  1. PROCRIT [Suspect]
     Indication: RENAL FAILURE CHRONIC
     Route: 058
     Dates: start: 19990301, end: 20060522
  2. PREDNISONE TAB [Concomitant]
  3. TACROLIMUS [Concomitant]
     Dates: start: 19981228

REACTIONS (7)
  - ARTHRALGIA [None]
  - DIARRHOEA [None]
  - MYALGIA [None]
  - RETICULOCYTE COUNT DECREASED [None]
  - SERUM FERRITIN INCREASED [None]
  - THERAPEUTIC RESPONSE DECREASED [None]
  - TRANSFERRIN SATURATION INCREASED [None]
